FAERS Safety Report 8507914-1 (Version None)
Quarter: 2012Q3

REPORT INFORMATION
  Report Type: 
  Country: None (occurrence: None)
  Receive Date: 20120709
  Receipt Date: 20120709
  Transmission Date: 20120928
  Serious: Yes (Disabling)
  Sender: FDA-Public Use
  Company Number: None

PATIENT
  Age: 31 Year
  Sex: Female
  Weight: 92.9874 kg

DRUGS (1)
  1. CELEBREX [Suspect]
     Indication: ARTHRALGIA
     Dosage: 200 MG ONCE DAILY PO
     Route: 048
     Dates: start: 20120401, end: 20120702

REACTIONS (4)
  - DIVERTICULITIS [None]
  - HIATUS HERNIA [None]
  - GASTRITIS [None]
  - DIVERTICULUM [None]
